FAERS Safety Report 6974364-9 (Version None)
Quarter: 2010Q3

REPORT INFORMATION
  Report Type: 
  Country: None (occurrence: None)
  Receive Date: 20100909
  Receipt Date: 20100903
  Transmission Date: 20110219
  Serious: Yes (Life-Threatening)
  Sender: FDA-Public Use
  Company Number: PHHY2010US59534

PATIENT
  Sex: Female

DRUGS (1)
  1. VIVELLE-DOT [Suspect]
     Indication: OSTEOPOROSIS
     Dosage: 0.05 MG, UNK
     Route: 062

REACTIONS (3)
  - FEELING ABNORMAL [None]
  - MALABSORPTION [None]
  - MALNUTRITION [None]
